FAERS Safety Report 7220314-X (Version None)
Quarter: 2011Q1

REPORT INFORMATION
  Report Type: 
  Country: None (occurrence: None)
  Receive Date: 20110111
  Receipt Date: 20110107
  Transmission Date: 20110831
  Serious: Yes (Death)
  Sender: FDA-Public Use
  Company Number: BR-CUBIST-2010S1001727

PATIENT
  Age: 95 Year
  Sex: Female
  Weight: 68 kg

DRUGS (3)
  1. CUBICIN [Suspect]
     Dates: start: 20100816, end: 20100819
  2. CUBICIN [Suspect]
     Indication: STAPHYLOCOCCAL BACTERAEMIA
     Dates: start: 20100816, end: 20100819
  3. PIPERACILLIN AND TAZOBACTAM [Concomitant]
     Indication: PRODUCT USED FOR UNKNOWN INDICATION
     Dates: start: 20100812, end: 20100819

REACTIONS (1)
  - CARDIAC ARREST [None]
